FAERS Safety Report 7597707-4 (Version None)
Quarter: 2011Q3

REPORT INFORMATION
  Report Type: 
  Country: None (occurrence: None)
  Receive Date: 20110708
  Receipt Date: 20110628
  Transmission Date: 20111222
  Serious: Yes (Other)
  Sender: FDA-Public Use
  Company Number: CA-GLAXOSMITHKLINE-A0933566A

PATIENT
  Sex: Male
  Weight: 71.4 kg

DRUGS (3)
  1. EYE DROP [Concomitant]
     Route: 065
  2. ADVAIR DISKUS 100/50 [Suspect]
     Indication: CHRONIC OBSTRUCTIVE PULMONARY DISEASE
     Dosage: 1PUFF TWICE PER DAY
     Route: 055
  3. SPIRIVA [Concomitant]
     Route: 065

REACTIONS (4)
  - BORDERLINE GLAUCOMA [None]
  - SLEEP DISORDER [None]
  - VISION BLURRED [None]
  - COUGH [None]
